FAERS Safety Report 19592890 (Version 1)
Quarter: 2021Q3

REPORT INFORMATION
  Report Type: Spontaneous
  Country: IN (occurrence: IN)
  Receive Date: 20210722
  Receipt Date: 20210722
  Transmission Date: 20211014
  Serious: Yes (Hospitalization)
  Sender: FDA-Public Use
  Company Number: None

PATIENT
  Age: 55 Year
  Sex: Male

DRUGS (1)
  1. LEVOFLOX [Suspect]
     Active Substance: LEVOFLOXACIN
     Indication: HAEMOPERITONEUM
     Route: 042
     Dates: start: 20210717, end: 20210717

REACTIONS (5)
  - Oxygen saturation decreased [None]
  - Tachypnoea [None]
  - Chills [None]
  - Pyrexia [None]
  - Tachycardia [None]

NARRATIVE: CASE EVENT DATE: 20210717
